FAERS Safety Report 24820676 (Version 1)
Quarter: 2025Q1

REPORT INFORMATION
  Report Type: Spontaneous
  Country: US (occurrence: US)
  Receive Date: 20250108
  Receipt Date: 20250108
  Transmission Date: 20250409
  Serious: No
  Sender: BIOMARIN
  Company Number: US-SA-2024SA384403

PATIENT

DRUGS (1)
  1. LARONIDASE [Suspect]
     Active Substance: LARONIDASE
     Indication: Mucopolysaccharidosis I
     Dosage: 8.7 UNK(UNITS NOT KNOWN), QW
     Route: 042
     Dates: start: 202210

REACTIONS (4)
  - Asthma [Unknown]
  - Wheezing [Unknown]
  - Cough [Unknown]
  - Wrong technique in product usage process [Unknown]

NARRATIVE: CASE EVENT DATE: 20241201
